FAERS Safety Report 24634682 (Version 1)
Quarter: 2024Q4

REPORT INFORMATION
  Report Type: Spontaneous
  Country: CN (occurrence: CN)
  Receive Date: 20241119
  Receipt Date: 20241119
  Transmission Date: 20250115
  Serious: Yes (Hospitalization, Other)
  Sender: SANOFI AVENTIS
  Company Number: CN-SA-2024SA331358

PATIENT
  Age: 67 Year
  Sex: Female
  Weight: 78 kg

DRUGS (2)
  1. TOUJEO [Suspect]
     Active Substance: INSULIN GLARGINE
     Indication: Blood glucose increased
     Dosage: 32 IU, QD
     Route: 058
     Dates: start: 20241030, end: 20241031
  2. INSULIN HUMAN [Concomitant]
     Active Substance: INSULIN HUMAN
     Dosage: 10 IU, TID
     Route: 058

REACTIONS (8)
  - Rash erythematous [Recovering/Resolving]
  - Angioedema [Recovering/Resolving]
  - Swelling face [Recovering/Resolving]
  - Scratch [Recovering/Resolving]
  - Erythema [Recovering/Resolving]
  - Eye swelling [Recovering/Resolving]
  - Ocular hyperaemia [Recovering/Resolving]
  - Discomfort [Recovering/Resolving]

NARRATIVE: CASE EVENT DATE: 20241031
